FAERS Safety Report 6072872-9 (Version None)
Quarter: 2009Q1

REPORT INFORMATION
  Report Type: 
  Country: None (occurrence: None)
  Receive Date: 20090205
  Receipt Date: 20090128
  Transmission Date: 20090719
  Serious: Yes (Other)
  Sender: FDA-Public Use
  Company Number: 100#03#2009-00343

PATIENT
  Age: 70 Year
  Sex: Female

DRUGS (8)
  1. ALENDRONIC ACID (ALENDRONIC ACID) [Suspect]
     Indication: DRUG USE FOR UNKNOWN INDICATION
     Dosage: 70 MG ONCE WEEKLY ORAL
     Route: 048
  2. ADCAL-D3 (CALCIUM CARBONATE, COLECALCIFEROL) [Concomitant]
  3. ACETYLSALICYLIC ACID SRT [Concomitant]
  4. BENDROFLUMETHIAZIDE (BENDROFLUAZIDE) [Concomitant]
  5. DOCUSATE (DOCUSATE) [Concomitant]
  6. METFORMIN HCL [Concomitant]
  7. RAMIPRIL [Concomitant]
  8. SIMVASTATIN [Concomitant]

REACTIONS (1)
  - DEPRESSION [None]
